FAERS Safety Report 5109049-7 (Version None)
Quarter: 2006Q3

REPORT INFORMATION
  Report Type: 
  Country: None (occurrence: None)
  Receive Date: 20060918
  Receipt Date: 20060904
  Transmission Date: 20061208
  Serious: Yes (Hospitalization)
  Sender: FDA-Public Use
  Company Number: 2006106402

PATIENT
  Age: 42 Year
  Sex: Male

DRUGS (7)
  1. CLINDAMYCIN PHOSPHATE [Suspect]
     Indication: DRUG USE FOR UNKNOWN INDICATION
     Dosage: 1.8 GRAM (FREQUENCY: UNKNOWN/D), INTRAVENOUS
     Route: 042
     Dates: start: 20060821, end: 20060827
  2. CEFAZOLIN SODIUM [Suspect]
     Indication: DRUG USE FOR UNKNOWN INDICATION
     Dosage: 1 GRAM (FREQUENCY: UNKNOWN/D); INTRAVENOUS, (SEE IMAGE)
     Route: 042
     Dates: start: 20060812, end: 20060824
  3. CEFAZOLIN SODIUM [Suspect]
     Indication: DRUG USE FOR UNKNOWN INDICATION
     Dosage: 1 GRAM (FREQUENCY: UNKNOWN/D); INTRAVENOUS, (SEE IMAGE)
     Route: 042
     Dates: start: 20060825, end: 20060827
  4. RIFADIN [Concomitant]
  5. BLOPRESS (CANDESARTAN CILEXETIL) [Concomitant]
  6. RABEPRAZOLE SODIUM [Concomitant]
  7. AMLODIPINE [Concomitant]

REACTIONS (5)
  - CONVULSION [None]
  - DEPRESSED LEVEL OF CONSCIOUSNESS [None]
  - DYSARTHRIA [None]
  - DYSKINESIA [None]
  - HAEMODIALYSIS [None]
